FAERS Safety Report 9275842 (Version 3)
Quarter: 2014Q3

REPORT INFORMATION
  Report Type: Spontaneous
  Country: US (occurrence: US)
  Receive Date: 20130507
  Receipt Date: 20140725
  Transmission Date: 20150326
  Serious: Yes (Hospitalization)
  Sender: FDA-Public Use
  Company Number: US-BAYER-2013-055783

PATIENT
  Age: 23 Year
  Sex: Female
  Weight: 63.49 kg

DRUGS (4)
  1. WELLBUTRIN [Concomitant]
     Active Substance: BUPROPION HYDROCHLORIDE
  2. MIRENA [Suspect]
     Active Substance: LEVONORGESTREL
     Indication: CONTRACEPTION
     Dosage: 20 MCG/24HR, CONT
     Route: 015
     Dates: start: 20110519, end: 20110621
  3. SEASONIQUE [Concomitant]
     Active Substance: ETHINYL ESTRADIOL\LEVONORGESTREL
  4. DOXYCYCLINE. [Concomitant]
     Active Substance: DOXYCYCLINE

REACTIONS (11)
  - Dyspareunia [None]
  - Pain [None]
  - Device issue [None]
  - Depression [None]
  - Injury [None]
  - Device difficult to use [None]
  - Abdominal pain lower [None]
  - Anxiety [None]
  - Uterine perforation [None]
  - Painful defaecation [None]
  - Device breakage [None]

NARRATIVE: CASE EVENT DATE: 201105
